FAERS Safety Report 11575937 (Version 1)
Quarter: 2015Q3

REPORT INFORMATION
  Report Type: Spontaneous
  Country: US (occurrence: None)
  Receive Date: 20150929
  Receipt Date: 20150929
  Transmission Date: 20151125
  Serious: No
  Sender: FDA-Public Use
  Company Number: None

PATIENT
  Age: 74 Year
  Sex: Female

DRUGS (4)
  1. THYROID (SYNTHROID) [Concomitant]
  2. GADAVIST [Suspect]
     Active Substance: GADOBUTROL
     Indication: BREAST CANCER
     Dosage: 7.5?IV DURING MRI
     Route: 042
     Dates: start: 20150810, end: 20150810
  3. INSULINS AND ANALOGUES,FAST-ACTING [Concomitant]
     Active Substance: INSULIN NOS
  4. VIT C, D, E [Concomitant]

REACTIONS (9)
  - Insomnia [None]
  - Muscle spasms [None]
  - Musculoskeletal stiffness [None]
  - Pain [None]
  - Skin texture abnormal [None]
  - Gait disturbance [None]
  - Vision blurred [None]
  - Peripheral swelling [None]
  - Photosensitivity reaction [None]

NARRATIVE: CASE EVENT DATE: 20150810
